FAERS Safety Report 22524165 (Version 1)
Quarter: 2023Q2

REPORT INFORMATION
  Report Type: Spontaneous
  Country: US (occurrence: None)
  Receive Date: 20230606
  Receipt Date: 20230606
  Transmission Date: 20230722
  Serious: No
  Sender: FDA-Public Use
  Company Number: 2023A121116

PATIENT
  Sex: Male
  Weight: 87.5 kg

DRUGS (3)
  1. TAGRISSO [Suspect]
     Active Substance: OSIMERTINIB
     Indication: Non-small cell lung cancer
     Route: 048
     Dates: start: 20211104
  2. TAGRISSO [Suspect]
     Active Substance: OSIMERTINIB
     Indication: Brain cancer metastatic
     Route: 048
     Dates: start: 20211104
  3. TAGRISSO [Suspect]
     Active Substance: OSIMERTINIB
     Indication: Bone cancer metastatic
     Route: 048
     Dates: start: 20211104

REACTIONS (9)
  - Arthritis [Not Recovered/Not Resolved]
  - Cancer pain [Not Recovered/Not Resolved]
  - Clostridium difficile infection [Unknown]
  - Dyspepsia [Not Recovered/Not Resolved]
  - Hypoacusis [Not Recovered/Not Resolved]
  - Thrombosis [Unknown]
  - Weight fluctuation [Recovering/Resolving]
  - Alopecia [Not Recovered/Not Resolved]
  - Nail disorder [Not Recovered/Not Resolved]
